FAERS Safety Report 14897722 (Version 1)
Quarter: 2018Q2

REPORT INFORMATION
  Report Type: Spontaneous
  Country: DK (occurrence: DK)
  Receive Date: 20180515
  Receipt Date: 20180515
  Transmission Date: 20180711
  Serious: Yes (Hospitalization)
  Sender: FDA-Public Use
  Company Number: DK-TEVA-2018-DK-892162

PATIENT
  Age: 54 Year
  Sex: Male

DRUGS (5)
  1. ABILIFY [Concomitant]
     Active Substance: ARIPIPRAZOLE
     Indication: SCHIZOPHRENIA
     Route: 048
     Dates: start: 20130208
  2. VENLAFAXIN ^HEXAL^ [Concomitant]
     Indication: DEPRESSION
     Dosage: 225 MILLIGRAM DAILY;
     Route: 048
     Dates: start: 20170412
  3. CLOZAPINE. [Suspect]
     Active Substance: CLOZAPINE
     Indication: SCHIZOPHRENIA
     Route: 048
     Dates: start: 20130208, end: 20170706
  4. OXAPAX [Concomitant]
     Active Substance: OXAZEPAM
     Indication: SEDATIVE THERAPY
     Route: 048
     Dates: start: 20130208
  5. LAMOTRIGINE. [Concomitant]
     Active Substance: LAMOTRIGINE
     Indication: MOOD SWINGS
     Route: 048
     Dates: start: 20130208, end: 20170412

REACTIONS (6)
  - Insomnia [Unknown]
  - Painful erection [Recovered/Resolved]
  - Male genital tract operation [Recovered/Resolved]
  - Erectile dysfunction [Recovered/Resolved with Sequelae]
  - Erection increased [Recovered/Resolved]
  - Restlessness [Unknown]

NARRATIVE: CASE EVENT DATE: 201512
